FAERS Safety Report 11363749 (Version 1)
Quarter: 2015Q3

REPORT INFORMATION
  Report Type: Spontaneous
  Country: US (occurrence: None)
  Receive Date: 20150810
  Receipt Date: 20150810
  Transmission Date: 20151125
  Serious: Yes (Life-Threatening)
  Sender: FDA-Public Use
  Company Number: None

PATIENT
  Age: 74 Year
  Sex: Female
  Weight: 87.09 kg

DRUGS (1)
  1. INSULIN [Suspect]
     Active Substance: INSULIN NOS

REACTIONS (3)
  - Device kink [None]
  - Blood glucose increased [None]
  - Device defective [None]

NARRATIVE: CASE EVENT DATE: 20150808
